FAERS Safety Report 7458181-1 (Version None)
Quarter: 2011Q2

REPORT INFORMATION
  Report Type: 
  Country: None (occurrence: None)
  Receive Date: 20110504
  Receipt Date: 20110426
  Transmission Date: 20111010
  Serious: Yes (Disabling)
  Sender: FDA-Public Use
  Company Number: BE-ASTRAZENECA-2011SE20571

PATIENT
  Sex: Female
  Weight: 80 kg

DRUGS (2)
  1. SYMBICORT [Suspect]
     Route: 055
  2. SYMBICORT [Suspect]
     Dosage: 160 UG
     Route: 055

REACTIONS (1)
  - RESPIRATORY DISORDER [None]
